FAERS Safety Report 20514351 (Version 1)
Quarter: 2022Q1

REPORT INFORMATION
  Report Type: Spontaneous
  Country: US (occurrence: US)
  Receive Date: 20220224
  Receipt Date: 20220224
  Transmission Date: 20220423
  Serious: No
  Sender: FDA-Public Use
  Company Number: US-VYERA PHARMACEUTICALS, LLC-2021VYE00035

PATIENT
  Sex: Male
  Weight: 81.633 kg

DRUGS (12)
  1. DARAPRIM [Suspect]
     Active Substance: PYRIMETHAMINE
     Indication: Toxoplasmosis
     Dosage: UNK
     Route: 048
     Dates: start: 20210615, end: 2021
  2. DARAPRIM [Suspect]
     Active Substance: PYRIMETHAMINE
     Dosage: BACK OFF AND TAKE A BREAK
     Route: 048
     Dates: start: 2021, end: 2021
  3. DARAPRIM [Suspect]
     Active Substance: PYRIMETHAMINE
     Dosage: TITRATING UP; AT 4 TABLETS IN A WEEK
     Route: 048
     Dates: start: 2021, end: 202108
  4. VITAMIN D [Concomitant]
     Active Substance: VITAMIN D NOS
  5. PLAVIX [Concomitant]
     Active Substance: CLOPIDOGREL BISULFATE
     Dosage: 75 MG, 1X/DAY
  6. MAGNESIUM CITRATE [Concomitant]
     Active Substance: MAGNESIUM CITRATE
     Dosage: 200 MG, 1X/DAY
     Route: 048
  7. LOPRESSOR [Concomitant]
     Active Substance: METOPROLOL TARTRATE
     Dosage: 12.5 MG, 2X/DAY
  8. VITAMINS [Concomitant]
     Active Substance: VITAMINS
     Dosage: UNK, 1X/DAY
  9. COLACE [Concomitant]
     Active Substance: DOCUSATE SODIUM
     Dosage: 2 DOSAGE UNITS, 1X/DAY IN THE MORNING
  10. COLACE [Concomitant]
     Active Substance: DOCUSATE SODIUM
     Dosage: 1 DOSAGE UNITS, 1X/DAY IN THE EVENING
  11. VITAMIN B12 [Concomitant]
     Active Substance: CYANOCOBALAMIN
     Dosage: 1000 DOSAGE UNITS, 2X/WEEK
  12. VITAMIN B COMPLEX [Concomitant]
     Active Substance: CYANOCOBALAMIN\DEXPANTHENOL\NIACINAMIDE\PYRIDOXINE HYDROCHLORIDE\RIBOFLAVIN 5^-PHOSPHATE SODIUM\THIA
     Dosage: UNK, 2X/WEEK

REACTIONS (3)
  - Fatigue [Not Recovered/Not Resolved]
  - Muscular weakness [Not Recovered/Not Resolved]
  - Off label use [Recovered/Resolved]

NARRATIVE: CASE EVENT DATE: 20210101
